FAERS Safety Report 17006722 (Version 1)
Quarter: 2019Q4

REPORT INFORMATION
  Report Type: Spontaneous
  Country: US (occurrence: US)
  Receive Date: 20191106
  Receipt Date: 20191106
  Transmission Date: 20200122
  Serious: Yes (Disabling)
  Sender: FDA-Public Use
  Company Number: None

PATIENT
  Age: 32 Year
  Sex: Male
  Weight: 69.75 kg

DRUGS (1)
  1. FINASTERIDE, GENERIC 1MG [Suspect]
     Active Substance: FINASTERIDE
     Indication: ALOPECIA
     Dosage: ?          QUANTITY:1 TABLET(S);?
     Route: 048
     Dates: start: 20180401, end: 20190901

REACTIONS (3)
  - Depression [None]
  - Anxiety [None]
  - Loss of libido [None]

NARRATIVE: CASE EVENT DATE: 20190901
